FAERS Safety Report 8196358-0 (Version None)
Quarter: 2012Q1

REPORT INFORMATION
  Report Type: 
  Country: None (occurrence: None)
  Receive Date: 20120309
  Receipt Date: 20120306
  Transmission Date: 20120608
  Serious: Yes (Hospitalization)
  Sender: FDA-Public Use
  Company Number: US-PFIZER INC-2012058973

PATIENT
  Sex: Male
  Weight: 78.458 kg

DRUGS (4)
  1. DIAZEPAM [Concomitant]
     Indication: MUSCLE RELAXANT THERAPY
     Dosage: 5 MG, 3X/DAY AS NEEDED
  2. LORTAB [Concomitant]
     Indication: PAIN
     Dosage: 10/500 MG, AS NEEDED
  3. FLECTOR [Suspect]
     Indication: PAIN
     Dosage: UNK, 2X/DAY
     Dates: start: 20110101, end: 20120305
  4. MORPHINE [Concomitant]
     Indication: PAIN
     Dosage: 30 MG, 2X/DAY

REACTIONS (9)
  - CHEST PAIN [None]
  - HEADACHE [None]
  - PAIN IN EXTREMITY [None]
  - MUSCULOSKELETAL PAIN [None]
  - BACK PAIN [None]
  - FEELING ABNORMAL [None]
  - CEREBROVASCULAR ACCIDENT [None]
  - PRURITUS [None]
  - NECK PAIN [None]
